FAERS Safety Report 14921066 (Version 1)
Quarter: 2018Q2

REPORT INFORMATION
  Report Type: Spontaneous
  Country: None (occurrence: DE)
  Receive Date: 20180521
  Receipt Date: 20180521
  Transmission Date: 20180711
  Serious: Yes (Other)
  Sender: FDA-Public Use
  Company Number: DE-LABORATOIRE HRA PHARMA-2048187

PATIENT
  Age: 52 Year
  Sex: Female

DRUGS (16)
  1. ALLOPURINOL SODIUM. [Concomitant]
     Active Substance: ALLOPURINOL SODIUM
  2. PROGESTERONE. [Concomitant]
     Active Substance: PROGESTERONE
  3. SALBUTAMOL [Concomitant]
     Active Substance: ALBUTEROL
  4. COLECALCIFEROL [Concomitant]
     Active Substance: CHOLECALCIFEROL
     Dates: start: 20150826
  5. PASIREOTIDE. [Suspect]
     Active Substance: PASIREOTIDE
  6. CETIRIZINE [Concomitant]
     Active Substance: CETIRIZINE HYDROCHLORIDE
  7. HYDROCORTISONE SODIUM SUCCINATE [Concomitant]
     Active Substance: HYDROCORTISONE SODIUM SUCCINATE
     Dates: start: 20150309, end: 20160405
  8. LEVOTHYROXINE SODIUM. [Concomitant]
     Active Substance: LEVOTHYROXINE SODIUM
     Dates: start: 20150309
  9. CALCIUM [Concomitant]
     Active Substance: CALCIUM
     Dates: start: 20150826, end: 20160315
  10. METOPIRONE [Suspect]
     Active Substance: METYRAPONE
     Indication: PRODUCT USED FOR UNKNOWN INDICATION
  11. CLONIDINE. [Concomitant]
     Active Substance: CLONIDINE
  12. LERCANIDIPINE [Concomitant]
     Active Substance: LERCANIDIPINE
  13. FERROUS GLYCINE SULFATE [Concomitant]
     Active Substance: FERROUS GLYCINE SULFATE
     Dates: start: 20160501
  14. POTASSIUM IODIDE. [Concomitant]
     Active Substance: POTASSIUM IODIDE
  15. BISOPROLOL [Concomitant]
     Active Substance: BISOPROLOL
  16. RAMIPRIL. [Concomitant]
     Active Substance: RAMIPRIL

REACTIONS (2)
  - Hypertrichosis [Unknown]
  - Hypokalaemia [Unknown]

NARRATIVE: CASE EVENT DATE: 20170810
